FAERS Safety Report 9585897 (Version 3)
Quarter: 2014Q1

REPORT INFORMATION
  Report Type: Spontaneous
  Country: US (occurrence: US)
  Receive Date: 20131003
  Receipt Date: 20140109
  Transmission Date: 20141002
  Serious: Yes (Death, Other)
  Sender: FDA-Public Use
  Company Number: US-CELGENEUS-163-21880-13094579

PATIENT
  Age: 75 Year
  Sex: Female

DRUGS (7)
  1. REVLIMID [Suspect]
     Indication: MYELODYSPLASTIC SYNDROME
     Dosage: 10 MILLIGRAM
     Route: 048
     Dates: start: 20130510, end: 20130923
  2. FLAGYL [Concomitant]
     Indication: PRODUCT USED FOR UNKNOWN INDICATION
     Route: 065
  3. SERTRALINE HCL [Concomitant]
     Indication: PRODUCT USED FOR UNKNOWN INDICATION
     Route: 065
  4. CIPRO [Concomitant]
     Indication: PRODUCT USED FOR UNKNOWN INDICATION
     Route: 065
  5. SIMVASTATIN [Concomitant]
     Indication: PRODUCT USED FOR UNKNOWN INDICATION
     Route: 065
  6. HYDROXYUREA [Concomitant]
     Indication: ACUTE MYELOID LEUKAEMIA
     Route: 048
     Dates: start: 20130903, end: 20130923
  7. DACOGEN [Concomitant]
     Indication: ACUTE MYELOID LEUKAEMIA
     Dosage: 31 MILLIGRAM
     Route: 041
     Dates: start: 20130819, end: 20130823

REACTIONS (2)
  - Acute myeloid leukaemia [Fatal]
  - Cerebral haemorrhage [Fatal]
